FAERS Safety Report 4901343-5 (Version None)
Quarter: 2006Q1

REPORT INFORMATION
  Report Type: 
  Country: None (occurrence: None)
  Receive Date: 20060206
  Receipt Date: 20060202
  Transmission Date: 20060701
  Serious: Yes (Life-Threatening, Other)
  Sender: FDA-Public Use
  Company Number: GB-BRISTOL-MYERS SQUIBB COMPANY-13269550

PATIENT
  Age: 43 Year
  Sex: Female

DRUGS (6)
  1. TAXOL [Suspect]
     Indication: GERM CELL CANCER
     Route: 042
     Dates: start: 20060121, end: 20060127
  2. CISPLATIN [Suspect]
     Indication: GERM CELL CANCER
     Route: 042
     Dates: start: 20060121, end: 20060127
  3. ETOPOSIDE [Suspect]
     Indication: GERM CELL CANCER
     Route: 042
     Dates: start: 20060121, end: 20060127
  4. OMEPRAZOLE [Concomitant]
  5. ALLOPURINOL [Concomitant]
  6. ZOPICLONE [Concomitant]

REACTIONS (3)
  - CHEST PAIN [None]
  - DIARRHOEA [None]
  - NEUTROPENIA [None]
